FAERS Safety Report 6162687-5 (Version None)
Quarter: 2009Q2

REPORT INFORMATION
  Report Type: 
  Country: None (occurrence: None)
  Receive Date: 20090417
  Receipt Date: 20090405
  Transmission Date: 20091009
  Serious: Yes (Other)
  Sender: FDA-Public Use
  Company Number: GB-DEXPHARM-20090421

PATIENT
  Age: 78 Year
  Sex: Male

DRUGS (5)
  1. CORSODYL [Suspect]
     Dosage: ORAL
     Route: 048
     Dates: start: 20080814, end: 20081101
  2. AMLODIPINE [Concomitant]
  3. ASPIRIN [Concomitant]
  4. LISINOPRIL [Concomitant]
  5. SIMVASTATIN [Concomitant]

REACTIONS (1)
  - SWOLLEN TONGUE [None]
